FAERS Safety Report 8430105-X (Version None)
Quarter: 2012Q2

REPORT INFORMATION
  Report Type: 
  Country: None (occurrence: None)
  Receive Date: 20120612
  Receipt Date: 20120607
  Transmission Date: 20120825
  Serious: Yes (Hospitalization)
  Sender: FDA-Public Use
  Company Number: GB-ROCHE-1076838

PATIENT
  Sex: Female

DRUGS (5)
  1. ALENDRONATE SODIUM [Concomitant]
     Dates: start: 20090722
  2. LUCENTIS [Suspect]
     Indication: AGE-RELATED MACULAR DEGENERATION
     Route: 050
     Dates: start: 20090327
  3. LUCENTIS [Suspect]
     Route: 050
     Dates: start: 20090519
  4. LISINOPRIL [Concomitant]
     Indication: BLOOD PRESSURE
  5. BENDROFLUMETHIAZIDE [Concomitant]
     Indication: BLOOD PRESSURE
     Dates: start: 20090722

REACTIONS (1)
  - ANGINA PECTORIS [None]
